FAERS Safety Report 10530951 (Version 3)
Quarter: 2015Q1

REPORT INFORMATION
  Report Type: Spontaneous
  Country: IT (occurrence: IT)
  Receive Date: 20141021
  Receipt Date: 20150226
  Transmission Date: 20150720
  Serious: Yes (Hospitalization)
  Sender: FDA-Public Use
  Company Number: IT-TEVA-515721ISR

PATIENT
  Age: 65 Year
  Sex: Female
  Weight: 52 kg

DRUGS (7)
  1. VINCRISTINA TEVA ITALIA [Suspect]
     Active Substance: VINCRISTINE
     Indication: B-CELL LYMPHOMA
     Route: 042
     Dates: start: 20140725, end: 20140908
  2. MABTHERA [Suspect]
     Active Substance: RITUXIMAB
     Indication: B-CELL LYMPHOMA
     Route: 042
     Dates: start: 20140725, end: 20140908
  3. ADRIBLASTINA [Suspect]
     Active Substance: DOXORUBICIN HYDROCHLORIDE
     Indication: B-CELL LYMPHOMA
     Route: 042
     Dates: start: 20140725, end: 20140908
  4. SOLU-MEDROL [Concomitant]
     Active Substance: METHYLPREDNISOLONE SODIUM SUCCINATE
     Indication: B-CELL LYMPHOMA
     Dosage: 40 MILLIGRAM DAILY;
     Route: 042
     Dates: start: 20140725, end: 20140908
  5. TRIMETON [Concomitant]
     Active Substance: CHLORPHENIRAMINE MALEATE
     Indication: PREMEDICATION
     Dosage: 10 MILLIGRAM DAILY;
     Route: 042
     Dates: start: 20140725, end: 20140908
  6. CICLOFOSFAMIDE [Suspect]
     Active Substance: CYCLOPHOSPHAMIDE
     Indication: B-CELL LYMPHOMA
     Route: 042
     Dates: start: 20140725, end: 20140908
  7. GRANISETRON KABI [Concomitant]
     Active Substance: GRANISETRON
     Indication: PREMEDICATION
     Dosage: 3 MILLIGRAM DAILY;
     Route: 042
     Dates: start: 20140725, end: 20140908

REACTIONS (2)
  - Pyrexia [Recovered/Resolved]
  - Hyperpyrexia [Recovered/Resolved]

NARRATIVE: CASE EVENT DATE: 20140919
